FAERS Safety Report 25870765 (Version 3)
Quarter: 2025Q4

REPORT INFORMATION
  Report Type: Report from Study
  Country: US (occurrence: US)
  Receive Date: 20251001
  Receipt Date: 20251210
  Transmission Date: 20260118
  Serious: Yes (Hospitalization, Other)
  Sender: ABBVIE
  Company Number: US-ABBVIE-6483025

PATIENT
  Age: 73 Year
  Sex: Female
  Weight: 64.863 kg

DRUGS (2)
  1. SKYRIZI [Suspect]
     Active Substance: RISANKIZUMAB-RZAA
     Indication: Psoriatic arthropathy
     Route: 058
     Dates: start: 20250925
  2. SKYRIZI [Suspect]
     Active Substance: RISANKIZUMAB-RZAA
     Route: 058
     Dates: start: 20241017

REACTIONS (8)
  - Pain [Unknown]
  - Ulcer [Recovered/Resolved]
  - Cardiac valve disease [Not Recovered/Not Resolved]
  - Procedural pain [Recovering/Resolving]
  - Insomnia [Recovering/Resolving]
  - Psoriasis [Not Recovered/Not Resolved]
  - Illness [Unknown]
  - Skin laceration [Recovered/Resolved]

NARRATIVE: CASE EVENT DATE: 20251026
